FAERS Safety Report 5793080-2 (Version None)
Quarter: 2008Q2

REPORT INFORMATION
  Report Type: 
  Country: None (occurrence: None)
  Receive Date: 20080626
  Receipt Date: 20080626
  Transmission Date: 20081010
  Serious: Yes (Other)
  Sender: FDA-Public Use
  Company Number: None

PATIENT
  Age: 36 Year
  Sex: Female
  Weight: 64.4108 kg

DRUGS (2)
  1. NUVARING [Suspect]
     Indication: CONTRACEPTION
     Dosage: .015 MG DAILY VAG
     Route: 067
     Dates: start: 20080330, end: 20080624
  2. MINOCYCLINE HCL [Concomitant]

REACTIONS (1)
  - SKIN DISCOLOURATION [None]
